FAERS Safety Report 4809148-0 (Version None)
Quarter: 2005Q4

REPORT INFORMATION
  Report Type: 
  Country: None (occurrence: None)
  Receive Date: 20051021
  Receipt Date: 20021004
  Transmission Date: 20060501
  Serious: No
  Sender: FDA-Public Use
  Company Number: FR_021001526

PATIENT
  Age: 25 Year
  Sex: Male

DRUGS (1)
  1. ZYPREXA [Suspect]
     Indication: PSYCHOTIC DISORDER
     Dosage: 5 MG/DAY
     Dates: start: 19550101, end: 20021002

REACTIONS (2)
  - HAEMOGLOBIN DECREASED [None]
  - LEUKOCYTOSIS [None]
